FAERS Safety Report 5867292-3 (Version None)
Quarter: 2008Q3

REPORT INFORMATION
  Report Type: 
  Country: None (occurrence: None)
  Receive Date: 20080902
  Receipt Date: 20080819
  Transmission Date: 20090109
  Serious: Yes (Death)
  Sender: FDA-Public Use
  Company Number: JP-SANOFI-SYNTHELABO-A01200810246

PATIENT
  Age: 69 Year
  Sex: Female

DRUGS (3)
  1. ANTACID TAB [Concomitant]
     Indication: PANCREATITIS
     Dosage: UNK
     Route: 065
     Dates: start: 20020925
  2. FUTHAN [Concomitant]
     Indication: ANALGESIA
     Dosage: 40 MG
     Route: 065
     Dates: start: 20020925
  3. PENTAZOCINE LACTATE [Suspect]
     Indication: PANCREATITIS
     Dosage: UNK
     Route: 065
     Dates: start: 20020925

REACTIONS (1)
  - PANCREATITIS [None]
